FAERS Safety Report 5194196-4 (Version None)
Quarter: 2006Q4

REPORT INFORMATION
  Report Type: 
  Country: None (occurrence: None)
  Receive Date: 20061228
  Receipt Date: 20061222
  Transmission Date: 20070319
  Serious: Yes (Other)
  Sender: FDA-Public Use
  Company Number: 2006UW28430

PATIENT
  Age: 72 Year
  Sex: Female
  Weight: 68 kg

DRUGS (5)
  1. NEXIUM [Suspect]
     Indication: GASTROOESOPHAGEAL REFLUX DISEASE
     Route: 048
  2. BONIVA [Concomitant]
  3. CALCIUM [Concomitant]
  4. BENECOL [Concomitant]
  5. SYNTHROID [Concomitant]

REACTIONS (2)
  - CONDITION AGGRAVATED [None]
  - OSTEOPOROSIS [None]
